FAERS Safety Report 7003133-9 (Version None)
Quarter: 2010Q3

REPORT INFORMATION
  Report Type: 
  Country: None (occurrence: None)
  Receive Date: 20100920
  Receipt Date: 20100521
  Transmission Date: 20110219
  Serious: No
  Sender: FDA-Public Use
  Company Number: US-ASTRAZENECA-2010SE23798

PATIENT
  Age: 50 Year
  Sex: Male
  Weight: 86.2 kg

DRUGS (1)
  1. SEROQUEL [Suspect]
     Indication: BIPOLAR DISORDER
     Route: 048

REACTIONS (4)
  - BLOOD PRESSURE ABNORMAL [None]
  - COLONOSCOPY [None]
  - ENDOSCOPY [None]
  - UMBILICAL HERNIA REPAIR [None]
